FAERS Safety Report 5109751-7 (Version None)
Quarter: 2006Q3

REPORT INFORMATION
  Report Type: 
  Country: None (occurrence: None)
  Receive Date: 20060918
  Receipt Date: 20060911
  Transmission Date: 20061208
  Serious: Yes (Hospitalization)
  Sender: FDA-Public Use
  Company Number: GXKR2006GB05648

PATIENT
  Age: 83 Year
  Sex: Female

DRUGS (9)
  1. FUROSEMIDE [Suspect]
     Dosage: 40 MG, QD, ORAL
     Route: 048
  2. ASPIRIN [Concomitant]
  3. ATENOLOL [Concomitant]
  4. ATORVASTATIN [Concomitant]
  5. FYBOGEL (ISPAGHULA, PLANTAGO OVATA) [Concomitant]
  6. GLICLAZIDE [Concomitant]
  7. HYPROMELLOSE [Concomitant]
  8. LEVOTHYROXINE SODIUM [Concomitant]
  9. PARACETAMOL [Concomitant]

REACTIONS (3)
  - FALL [None]
  - RENAL IMPAIRMENT [None]
  - SYNCOPE [None]
